FAERS Safety Report 5911876-0 (Version None)
Quarter: 2008Q4

REPORT INFORMATION
  Report Type: 
  Country: None (occurrence: None)
  Receive Date: 20081003
  Receipt Date: 20080918
  Transmission Date: 20090506
  Serious: Yes (Other)
  Sender: FDA-Public Use
  Company Number: 2008BI025732

PATIENT
  Age: 51 Year
  Sex: Female

DRUGS (6)
  1. ZEVALIN [Suspect]
     Indication: CENTRAL NERVOUS SYSTEM LYMPHOMA
     Dosage: 0.4 MCI/KG/ 1X/IV
     Route: 042
  2. RITUXIMAB (CON.) [Concomitant]
  3. TEMOZOLOMIDE (CON.) [Concomitant]
  4. METHOTREXATE (PREV.) [Concomitant]
  5. CYTARABINE (PREV.) [Concomitant]
  6. CORTICOSTEROIDS (PREV.) [Concomitant]

REACTIONS (1)
  - BONE MARROW FAILURE [None]
